FAERS Safety Report 20356625 (Version 2)
Quarter: 2022Q1

REPORT INFORMATION
  Report Type: Spontaneous
  Country: US (occurrence: US)
  Receive Date: 20220120
  Receipt Date: 20220225
  Transmission Date: 20220424
  Serious: Yes (Other)
  Sender: FDA-Public Use
  Company Number: US-BIOMARINAP-US-2022-140882

PATIENT
  Age: 6 Year
  Sex: Female
  Weight: 15.5 kg

DRUGS (2)
  1. VIMIZIM [Suspect]
     Active Substance: ELOSULFASE ALFA
     Indication: Mucopolysaccharidosis IV
     Dosage: 30 MILLIGRAM, QW
     Route: 042
     Dates: start: 20210604
  2. VIMIZIM [Suspect]
     Active Substance: ELOSULFASE ALFA
     Dosage: UNK, QW
     Route: 042
     Dates: start: 202005

REACTIONS (2)
  - Osteorrhagia [Recovered/Resolved]
  - Complication associated with device [Recovered/Resolved]

NARRATIVE: CASE EVENT DATE: 20220114
